FAERS Safety Report 6804832-1 (Version None)
Quarter: 2010Q2

REPORT INFORMATION
  Report Type: 
  Country: None (occurrence: None)
  Receive Date: 20100628
  Receipt Date: 20070622
  Transmission Date: 20101027
  Serious: Yes (Other)
  Sender: FDA-Public Use
  Company Number: US-PFIZER INC-2007052654

PATIENT
  Sex: Female
  Weight: 60.8 kg

DRUGS (4)
  1. GEODON [Suspect]
     Indication: BIPOLAR DISORDER
     Dates: start: 20070608
  2. KLONOPIN [Concomitant]
  3. DEPAKOTE [Concomitant]
  4. ZYPREXA [Concomitant]

REACTIONS (8)
  - CONFUSIONAL STATE [None]
  - DIZZINESS [None]
  - FALL [None]
  - FEELING ABNORMAL [None]
  - GAIT DISTURBANCE [None]
  - HYPOGLYCAEMIA [None]
  - HYPOTENSION [None]
  - THINKING ABNORMAL [None]
